FAERS Safety Report 9175645 (Version 2)
Quarter: 2012Q4

REPORT INFORMATION
  Report Type: 
  Country: US (occurrence: US)
  Receive Date: 20120911
  Receipt Date: 20120919
  Transmission Date: 20130627
  Serious: Yes (Other)
  Sender: FDA-Public Use
  Company Number: US-RB-044192-12

PATIENT
  Age: 75 Year
  Sex: Male

DRUGS (3)
  1. MUCINEX DM [Suspect]
     Indication: NASOPHARYNGITIS
     Route: 048
     Dates: start: 20120827
  2. MUCINEX DM [Suspect]
     Indication: OROPHARYNGEAL PAIN
     Route: 048
     Dates: start: 20120827
  3. TENORMIN [Concomitant]
     Indication: PRODUCT USED FOR UNKNOWN INDICATION

REACTIONS (2)
  - Swelling face [Recovered/Resolved]
  - Somnolence [Unknown]
